FAERS Safety Report 24149156 (Version 1)
Quarter: 2024Q3

REPORT INFORMATION
  Report Type: Spontaneous
  Country: US (occurrence: US)
  Receive Date: 20240729
  Receipt Date: 20240729
  Transmission Date: 20241017
  Serious: Yes (Other)
  Sender: BRISTOL MYERS SQUIBB
  Company Number: US-BRISTOL-MYERS SQUIBB COMPANY-2024-116770

PATIENT
  Age: 72 Year
  Sex: Female

DRUGS (1)
  1. POMALYST [Suspect]
     Active Substance: POMALIDOMIDE
     Indication: Acute lymphocytic leukaemia
     Dosage: DRUG INTERRUPTED FROM 01-JUL-2024 TO 17-JUL-2024
     Route: 048

REACTIONS (4)
  - Pneumonia [Unknown]
  - Breast cancer [Unknown]
  - Pleural effusion [Unknown]
  - Off label use [Unknown]
